FAERS Safety Report 8319706-7 (Version None)
Quarter: 2012Q2

REPORT INFORMATION
  Report Type: 
  Country: None (occurrence: None)
  Receive Date: 20120427
  Receipt Date: 20120417
  Transmission Date: 20120825
  Serious: Yes (Other)
  Sender: FDA-Public Use
  Company Number: US-ELI_LILLY_AND_COMPANY-US201204005696

PATIENT
  Age: 42 Year
  Sex: Female

DRUGS (2)
  1. LISINOPRIL                              /USA/ [Concomitant]
     Indication: BLOOD PRESSURE
     Dosage: UNK
     Dates: start: 20120402
  2. BYDUREON [Suspect]
     Indication: TYPE 2 DIABETES MELLITUS
     Dosage: 2 MG, WEEKLY (1/W)
     Route: 058
     Dates: start: 20120402, end: 20120413

REACTIONS (2)
  - LIP SWELLING [None]
  - PRURITUS [None]
